FAERS Safety Report 11940783 (Version 1)
Quarter: 2016Q1

REPORT INFORMATION
  Report Type: Report from Study
  Country: JP (occurrence: JP)
  Receive Date: 20160122
  Receipt Date: 20160122
  Transmission Date: 20160526
  Serious: Yes (Other)
  Sender: FDA-Public Use
  Company Number: PHHO2015JP017061

PATIENT
  Age: 43 Year
  Sex: Male
  Weight: 78 kg

DRUGS (4)
  1. REVOLADE TAB [Suspect]
     Active Substance: ELTROMBOPAG
     Dosage: 75 MG, QD
     Route: 048
     Dates: start: 20141009, end: 20141022
  2. REVOLADE TAB [Suspect]
     Active Substance: ELTROMBOPAG
     Dosage: 100 UNK, UNK
     Route: 048
     Dates: start: 20141023, end: 20141210
  3. REVOLADE TAB [Suspect]
     Active Substance: ELTROMBOPAG
     Indication: APLASTIC ANAEMIA
     Dosage: 25 MG, QD
     Route: 048
     Dates: start: 20140911, end: 20140924
  4. REVOLADE TAB [Suspect]
     Active Substance: ELTROMBOPAG
     Dosage: 50 MG, QD
     Route: 048
     Dates: start: 20140925, end: 20141008

REACTIONS (1)
  - Cytogenetic abnormality [Recovered/Resolved]

NARRATIVE: CASE EVENT DATE: 20150708
